FAERS Safety Report 9015407 (Version 1)
Quarter: 2013Q1

REPORT INFORMATION
  Report Type: Spontaneous
  Country: ES (occurrence: None)
  Receive Date: 20130103
  Receipt Date: 20130103
  Transmission Date: 20140127
  Serious: Yes (Life-Threatening, Hospitalization)
  Sender: FDA-Public Use
  Company Number: ES-MACLEODS PHARMA-000046

PATIENT
  Age: 18 Year
  Sex: Female

DRUGS (1)
  1. LEVOFLOXACIN (LEVOFLOXACIN) [Suspect]
     Indication: URINARY TRACT INFECTION

REACTIONS (3)
  - Myasthenia gravis crisis [None]
  - Respiratory failure [None]
  - Respiratory arrest [None]
